FAERS Safety Report 8267215-6 (Version None)
Quarter: 2012Q2

REPORT INFORMATION
  Report Type: 
  Country: None (occurrence: None)
  Receive Date: 20120409
  Receipt Date: 20120329
  Transmission Date: 20120825
  Serious: Yes (Other)
  Sender: FDA-Public Use
  Company Number: US-BAYER-2012-019829

PATIENT
  Age: 36 Year
  Sex: Female
  Weight: 96.5 kg

DRUGS (6)
  1. PROAIR HFA [Concomitant]
     Dosage: 90 MCG/24HR, UNK
     Route: 045
  2. FEMCON FE [Concomitant]
  3. CEFDINIR [Concomitant]
     Dosage: 300 MG, UNK
     Route: 048
  4. YAZ [Suspect]
     Dosage: UNK
  5. PREDNISONE [Concomitant]
     Indication: RESPIRATORY TRACT INFECTION
     Dosage: 10 MG, UNK
     Route: 048
  6. IMITREX [Concomitant]
     Dosage: 100 MG, UNK
     Route: 048

REACTIONS (2)
  - DEEP VEIN THROMBOSIS [None]
  - PAIN [None]
